FAERS Safety Report 11019129 (Version 1)
Quarter: 2015Q2

REPORT INFORMATION
  Report Type: Report from Study
  Country: BR (occurrence: BR)
  Receive Date: 20150412
  Receipt Date: 20150412
  Transmission Date: 20150821
  Serious: Yes (Hospitalization)
  Sender: FDA-Public Use
  Company Number: PHHY2015BR041584

PATIENT
  Sex: Male

DRUGS (1)
  1. SANDOSTATIN LAR DEPOT [Suspect]
     Active Substance: OCTREOTIDE ACETATE
     Indication: ACROMEGALY
     Dosage: UNK, EVERY 28 DAYS
     Route: 065

REACTIONS (13)
  - Atrophy [Unknown]
  - Limb discomfort [Recovering/Resolving]
  - General physical health deterioration [Recovered/Resolved]
  - Arthralgia [Recovering/Resolving]
  - Prognathism [Recovered/Resolved]
  - Cardiac disorder [Recovered/Resolved]
  - Parkinsonian gait [Unknown]
  - Musculoskeletal pain [Recovering/Resolving]
  - Hypokinesia [Unknown]
  - Bone deformity [Recovered/Resolved]
  - Hand deformity [Recovered/Resolved]
  - Fatigue [Unknown]
  - Weight decreased [Recovering/Resolving]
